FAERS Safety Report 5674301-3 (Version None)
Quarter: 2008Q1

REPORT INFORMATION
  Report Type: 
  Country: None (occurrence: None)
  Receive Date: 20080320
  Receipt Date: 20080313
  Transmission Date: 20080703
  Serious: Yes (Hospitalization)
  Sender: FDA-Public Use
  Company Number: BE-BAYER-200813656GPV

PATIENT
  Age: 59 Year
  Sex: Male
  Weight: 92 kg

DRUGS (2)
  1. AVELOX [Suspect]
     Indication: BRONCHITIS
     Dosage: TOTAL DAILY DOSE: 400 MG  UNIT DOSE: 400 MG
     Route: 048
     Dates: start: 20071208, end: 20071208
  2. MEDROL [Concomitant]
     Indication: BRONCHITIS
     Dosage: TOTAL DAILY DOSE: 16 MG  UNIT DOSE: 16 MG
     Route: 048
     Dates: start: 20071205, end: 20071215

REACTIONS (4)
  - ANAPHYLACTIC REACTION [None]
  - ANGIOEDEMA [None]
  - CYANOSIS [None]
  - HYPOXIA [None]
